FAERS Safety Report 7817887-2 (Version None)
Quarter: 2011Q4

REPORT INFORMATION
  Report Type: 
  Country: None (occurrence: None)
  Receive Date: 20111017
  Receipt Date: 20111010
  Transmission Date: 20120403
  Serious: Yes (Hospitalization)
  Sender: FDA-Public Use
  Company Number: BR-BRISTOL-MYERS SQUIBB COMPANY-16151326

PATIENT
  Age: 65 Year
  Sex: Male
  Weight: 85 kg

DRUGS (11)
  1. NORVASC [Concomitant]
  2. COUMADIN [Suspect]
     Indication: CEREBROVASCULAR ACCIDENT
  3. ALLOPURINOL [Concomitant]
  4. AMARYL [Concomitant]
  5. ENDOFOLIN [Concomitant]
  6. MODURETIC 5-50 [Concomitant]
  7. SOTALOL HYDROCHLORIDE [Concomitant]
  8. LIPITOR [Concomitant]
  9. METFORMIN HYDROCHLORIDE [Concomitant]
  10. RABEPRAZOLE SODIUM [Concomitant]
  11. DIOVAN [Concomitant]

REACTIONS (4)
  - INTERNATIONAL NORMALISED RATIO DECREASED [None]
  - PNEUMONIA [None]
  - CONFUSIONAL STATE [None]
  - DRUG INEFFECTIVE [None]
